FAERS Safety Report 9688842 (Version 1)
Quarter: 2013Q4

REPORT INFORMATION
  Report Type: Spontaneous
  Country: US (occurrence: US)
  Receive Date: 20131114
  Receipt Date: 20131114
  Transmission Date: 20140711
  Serious: Yes (Hospitalization)
  Sender: FDA-Public Use
  Company Number: US-PFIZER INC-2013320852

PATIENT
  Age: 68 Year
  Sex: Male
  Weight: 107 kg

DRUGS (3)
  1. VFEND [Suspect]
     Indication: FUNGAL INFECTION
     Dosage: 200 MG, 2X/DAY
     Dates: start: 201306
  2. COUMADIN [Suspect]
     Dosage: UNK
  3. XANAX [Concomitant]
     Dosage: UNK

REACTIONS (1)
  - Renal disorder [Recovering/Resolving]
